FAERS Safety Report 8973777 (Version 1)
Quarter: 2012Q4

REPORT INFORMATION
  Report Type: 
  Country: US (occurrence: US)
  Receive Date: 20121218
  Receipt Date: 20121218
  Transmission Date: 20130627
  Serious: No
  Sender: FDA-Public Use
  Company Number: US-BRISTOL-MYERS SQUIBB COMPANY-16412256

PATIENT

DRUGS (2)
  1. ABILIFY [Suspect]
     Indication: AFFECTIVE DISORDER
  2. ABILIFY [Suspect]
     Indication: DEPRESSION

REACTIONS (2)
  - Lipids increased [Unknown]
  - Blood glucose increased [Unknown]
